FAERS Safety Report 9583392 (Version 1)
Quarter: 2013Q4

REPORT INFORMATION
  Report Type: Spontaneous
  Country: US (occurrence: US)
  Receive Date: 20131002
  Receipt Date: 20131002
  Transmission Date: 20140711
  Serious: No
  Sender: FDA-Public Use
  Company Number: US-AMGEN-USASP2013046569

PATIENT
  Age: 79 Year
  Sex: Female
  Weight: 81.63 kg

DRUGS (10)
  1. ENBREL [Suspect]
     Indication: PRODUCT USED FOR UNKNOWN INDICATION
     Dosage: 50 MG, QWK
     Route: 058
  2. VERAPAMIL [Concomitant]
     Dosage: 240 MG, UNK, ER
  3. LASIX                              /00032601/ [Concomitant]
     Dosage: 20 MG, UNK
  4. MINOCYCLINE [Concomitant]
     Dosage: 50 MG, UNK
  5. PLAQUENIL                          /00072602/ [Concomitant]
     Dosage: 200 MG, UNK
  6. DIFLUCAN [Concomitant]
     Dosage: 100 MG, UNK
  7. LIPITOR [Concomitant]
     Dosage: 10 MG, UNK
  8. SYNTHROID [Concomitant]
     Dosage: 50 MUG, UNK
  9. TRAMADOL HCL [Concomitant]
     Dosage: 50 MG, UNK
  10. DONEPEZIL [Concomitant]
     Dosage: 10 MG, UNK

REACTIONS (1)
  - Sinusitis [Unknown]
